FAERS Safety Report 20996751 (Version 2)
Quarter: 2022Q2

REPORT INFORMATION
  Report Type: Report from Study
  Country: GR (occurrence: GR)
  Receive Date: 20220623
  Receipt Date: 20220630
  Transmission Date: 20220721
  Serious: Yes (Hospitalization)
  Sender: FDA-Public Use
  Company Number: GR-AMGEN-GRCCT2022103199

PATIENT
  Age: 11 Year
  Sex: Female

DRUGS (9)
  1. CARFILZOMIB [Suspect]
     Active Substance: CARFILZOMIB
     Indication: Acute lymphocytic leukaemia
     Dosage: 65 MILLIGRAM, ONE TIME DOSE
     Route: 042
     Dates: start: 20220609
  2. RYLAZE [Concomitant]
     Active Substance: ASPARAGINASE ERWINIA CHRYSANTHEMI (RECOMBINANT)-RYWN
     Dosage: 1 MILLILITER
     Route: 042
  3. URSODIOL [Concomitant]
     Active Substance: URSODIOL
     Dosage: 150 UNK
     Route: 042
     Dates: start: 20220610
  4. ALLOPURINOL [Concomitant]
     Active Substance: ALLOPURINOL
     Dosage: 100 UNK, TID
     Route: 042
     Dates: start: 20220610
  5. LOSEC [Concomitant]
     Active Substance: OMEPRAZOLE
     Dosage: 20 UNK
     Route: 042
     Dates: start: 20220610
  6. DEXAMETHASONE [Concomitant]
     Active Substance: DEXAMETHASONE
     Dosage: 3.48 MILLIGRAM
     Route: 042
     Dates: start: 20220610
  7. VINCRISTINE [Concomitant]
     Active Substance: VINCRISTINE
     Dosage: 1.7-1.74 MILLIGRAM
     Dates: start: 20220609
  8. DAUNORUBICIN [Concomitant]
     Active Substance: DAUNORUBICIN
     Dosage: 70 MILLIGRAM
     Dates: start: 20220610
  9. ASPARAGINASE ERWINIA CHRYSANTHEMI [Concomitant]
     Active Substance: ASPARAGINASE ERWINIA CHRYSANTHEMI
     Dosage: UNK

REACTIONS (2)
  - Hepatobiliary disease [Not Recovered/Not Resolved]
  - Sepsis syndrome [Not Recovered/Not Resolved]

NARRATIVE: CASE EVENT DATE: 20220612
